FAERS Safety Report 10345891 (Version 3)
Quarter: 2014Q3

REPORT INFORMATION
  Report Type: Spontaneous
  Country: BR (occurrence: BR)
  Receive Date: 20140728
  Receipt Date: 20140826
  Transmission Date: 20150326
  Serious: Yes (Other)
  Sender: FDA-Public Use
  Company Number: PHHY2008BR10799

PATIENT
  Age: 29 Year
  Sex: Female
  Weight: 47 kg

DRUGS (3)
  1. TEGRETOL [Suspect]
     Active Substance: CARBAMAZEPINE
     Dosage: 45 ML, DAILY
     Route: 048
  2. TEGRETOL [Suspect]
     Active Substance: CARBAMAZEPINE
     Indication: CONVULSION
     Dosage: 15 ML, TID (IN THE MORNING, IN THE AFTERNOON AND IN THE NIGHT)
  3. TEGRETOL [Suspect]
     Active Substance: CARBAMAZEPINE
     Dosage: 45 ML, DAILY
     Route: 048
     Dates: start: 20140722

REACTIONS (2)
  - Convulsion [Recovering/Resolving]
  - Incorrect dose administered [Unknown]

NARRATIVE: CASE EVENT DATE: 20080606
